FAERS Safety Report 17911398 (Version 1)
Quarter: 2020Q2

REPORT INFORMATION
  Report Type: Spontaneous
  Country: US (occurrence: US)
  Receive Date: 20200618
  Receipt Date: 20200618
  Transmission Date: 20200714
  Serious: No
  Sender: FDA-Public Use
  Company Number: US-ACCORD-152640

PATIENT
  Sex: Male
  Weight: 104.33 kg

DRUGS (6)
  1. ALLOPURINOL ACCORD [Suspect]
     Active Substance: ALLOPURINOL
     Indication: GOUT
     Dosage: DAILY
     Dates: start: 2018
  2. ACETYLSALICYLIC ACID [Concomitant]
     Active Substance: ASPIRIN
     Indication: ANTICOAGULANT THERAPY
     Dosage: STRENGTH: 325 MG, OTC
  3. ASCORBIC ACID. [Concomitant]
     Active Substance: ASCORBIC ACID
  4. COLECALCIFEROL [Concomitant]
     Active Substance: CHOLECALCIFEROL
  5. FISH OIL [Concomitant]
     Active Substance: FISH OIL
  6. LINUM USITATISSIMUM [Concomitant]

REACTIONS (1)
  - Dizziness [Not Recovered/Not Resolved]
